FAERS Safety Report 21502226 (Version 4)
Quarter: 2023Q1

REPORT INFORMATION
  Report Type: Spontaneous
  Country: JP (occurrence: JP)
  Receive Date: 20221025
  Receipt Date: 20230118
  Transmission Date: 20230417
  Serious: Yes (Death, Other)
  Sender: FDA-Public Use
  Company Number: JP-MSD-M2022-44604

PATIENT
  Age: 91 Year
  Sex: Male

DRUGS (8)
  1. LAGEVRIO [Suspect]
     Active Substance: MOLNUPIRAVIR
     Indication: COVID-19 treatment
     Dosage: 800 MILLIGRAM, BID
     Route: 048
     Dates: start: 20220930, end: 20221004
  2. LEVOTHYROXINE SODIUM [Concomitant]
     Active Substance: LEVOTHYROXINE SODIUM
     Dosage: 50 MICROGRAM, QD
     Route: 048
  3. TORSEMIDE [Concomitant]
     Active Substance: TORSEMIDE
     Dosage: 1 DOSAGE FORM, QD
     Route: 048
  4. LANSOPRAZOLE [Concomitant]
     Active Substance: LANSOPRAZOLE
     Dosage: 1 DOSAGE FORM, QD
     Route: 048
  5. SILODOSIN OD [Concomitant]
     Dosage: 1 DOSAGE FORM, BID
     Route: 048
  6. CARBOCYSTEINE [Concomitant]
     Active Substance: CARBOCYSTEINE
     Dosage: 1 DOSAGE FORM, BID
     Route: 048
  7. HERBALS [Concomitant]
     Active Substance: HERBALS
     Dosage: 2.5 GRAM, BID
     Route: 048
  8. BELSOMRA [Concomitant]
     Active Substance: SUVOREXANT
     Dosage: 1 DOSAGE FORM, QD
     Route: 048

REACTIONS (1)
  - COVID-19 pneumonia [Fatal]

NARRATIVE: CASE EVENT DATE: 20221004
